FAERS Safety Report 8238948 (Version 6)
Quarter: 2012Q4

REPORT INFORMATION
  Report Type: Report from Study
  Country: CH (occurrence: DE)
  Receive Date: 20111110
  Receipt Date: 20121019
  Transmission Date: 20130627
  Serious: Yes (Death, Hospitalization)
  Sender: FDA-Public Use
  Company Number: DE-BRISTOL-MYERS SQUIBB COMPANY-16222333

PATIENT
  Age: 70 Year
  Sex: Male
  Weight: 83 kg

DRUGS (10)
  1. CETUXIMAB [Suspect]
     Indication: NON-SMALL CELL LUNG CANCER
     Dosage: CEtuximab IV infusion Strength:5mg/ml .No of infusion-24,Disc
last dose on 21Oct2011
     Route: 042
     Dates: start: 20110506, end: 20111021
  2. CISPLATIN FOR INJ [Suspect]
     Indication: NON-SMALL CELL LUNG CANCER
     Dosage: Last dose on 19Aug2011
No of infusion-6,Long time
     Route: 042
     Dates: start: 20110506, end: 20110819
  3. VINORELBINE [Suspect]
     Indication: NON-SMALL CELL LUNG CANCER
     Dosage: Vinorelbine IV infusion.last dose on 26Aug2011.
No of infusion-12.,Long time
D1 and D8of eachcycle
     Route: 042
     Dates: start: 20110506, end: 20110826
  4. CANDESARTAN [Concomitant]
     Route: 048
     Dates: start: 2008
  5. FORMOTEROL [Concomitant]
     Dosage: 22Mar11-23Nov11;246days,23Mar11-Unk;24mcg;12mcg BID
     Route: 048
     Dates: start: 20110322
  6. TIOTROPIUM BROMIDE [Concomitant]
     Indication: PROPHYLAXIS
     Route: 055
     Dates: start: 20110323
  7. PANTOPRAZOLE [Concomitant]
     Indication: PROPHYLAXIS
     Route: 048
     Dates: start: 2011
  8. ACETYLSALICYLIC ACID [Concomitant]
     Indication: PROPHYLAXIS
     Route: 048
     Dates: start: 20110503
  9. APREPITANT [Concomitant]
     Indication: PROPHYLAXIS
     Route: 048
     Dates: start: 201105, end: 201105
  10. OXAZEPAM [Concomitant]
     Indication: PROPHYLAXIS
     Route: 048
     Dates: start: 20110504, end: 20110508

REACTIONS (2)
  - Pneumonia [Fatal]
  - Pulmonary embolism [Fatal]
